FAERS Safety Report 14245777 (Version 2)
Quarter: 2018Q1

REPORT INFORMATION
  Report Type: Report from Study
  Country: US (occurrence: US)
  Receive Date: 20171204
  Receipt Date: 20180128
  Transmission Date: 20180508
  Serious: Yes (Other)
  Sender: FDA-Public Use
  Company Number: PHEH2017US038378

PATIENT
  Age: 57 Year
  Sex: Female
  Weight: 71.21 kg

DRUGS (9)
  1. BACLOFEN. [Concomitant]
     Active Substance: BACLOFEN
     Indication: PRODUCT USED FOR UNKNOWN INDICATION
     Dosage: 1 DF (10 MG), BID
     Route: 048
     Dates: start: 20170728
  2. BACLOFEN. [Concomitant]
     Active Substance: BACLOFEN
     Dosage: 20 MG, UNK
     Route: 065
     Dates: start: 20171101
  3. FLAVOXATE [Concomitant]
     Active Substance: FLAVOXATE
     Indication: PRODUCT USED FOR UNKNOWN INDICATION
     Dosage: UNK
     Route: 065
     Dates: start: 20170929
  4. LIDOCAINE/PRILOCAINE [Concomitant]
     Active Substance: LIDOCAINE\PRILOCAINE
     Indication: PRODUCT USED FOR UNKNOWN INDICATION
     Dosage: UNK
     Route: 061
     Dates: start: 20170913
  5. ESOMEPRAZOLE MAGNESIUM. [Concomitant]
     Active Substance: ESOMEPRAZOLE MAGNESIUM
     Indication: PRODUCT USED FOR UNKNOWN INDICATION
     Dosage: 1 DF (DELAYED RELEASE), QD
     Route: 048
     Dates: start: 20171103
  6. LEVOCETIRIZINE [Concomitant]
     Active Substance: LEVOCETIRIZINE
     Indication: PRODUCT USED FOR UNKNOWN INDICATION
     Dosage: UNK
     Route: 065
     Dates: start: 20170929
  7. HYDROCODONE/ACETAMINOPHEN [Concomitant]
     Active Substance: ACETAMINOPHEN\HYDROCODONE
     Indication: PRODUCT USED FOR UNKNOWN INDICATION
     Dosage: UNK
     Route: 065
     Dates: start: 20170828
  8. GILENYA [Suspect]
     Active Substance: FINGOLIMOD HYDROCHLORIDE
     Indication: PRODUCT USED FOR UNKNOWN INDICATION
     Dosage: UNK, QD
     Route: 048
     Dates: start: 20171004, end: 20171101
  9. CIPROFLOXACIN. [Concomitant]
     Active Substance: CIPROFLOXACIN
     Indication: PRODUCT USED FOR UNKNOWN INDICATION
     Dosage: UNK
     Route: 065
     Dates: start: 20170817

REACTIONS (47)
  - Throat tightness [Unknown]
  - Temperature intolerance [Unknown]
  - Painful respiration [Unknown]
  - Micturition urgency [Unknown]
  - Aphasia [Not Recovered/Not Resolved]
  - Visual impairment [Unknown]
  - Body mass index increased [Unknown]
  - Sleep disorder [Unknown]
  - Back pain [Unknown]
  - Fatigue [Unknown]
  - Muscle spasms [Unknown]
  - Pollakiuria [Unknown]
  - Nocturia [Unknown]
  - Foreign body in respiratory tract [Unknown]
  - Thyroid hormones decreased [Unknown]
  - Abdominal pain [Unknown]
  - Hypersensitivity [Unknown]
  - Constipation [Not Recovered/Not Resolved]
  - Hepatic steatosis [Unknown]
  - Thyroid disorder [Unknown]
  - Autoimmune thyroiditis [Unknown]
  - Memory impairment [Not Recovered/Not Resolved]
  - Insomnia [Unknown]
  - Upper-airway cough syndrome [Unknown]
  - Nausea [Unknown]
  - Diarrhoea [Unknown]
  - Pruritus generalised [Unknown]
  - Respiratory tract congestion [Unknown]
  - Central nervous system lesion [Unknown]
  - Confusional state [Unknown]
  - Eye pain [Unknown]
  - Dyspepsia [Unknown]
  - Joint swelling [Unknown]
  - Multiple sclerosis [Unknown]
  - Blindness unilateral [Unknown]
  - Deafness transitory [Not Recovered/Not Resolved]
  - Urinary incontinence [Recovering/Resolving]
  - Vision blurred [Not Recovered/Not Resolved]
  - Respiratory rate increased [Unknown]
  - Neck pain [Unknown]
  - Varicella zoster virus infection [Unknown]
  - Dyspnoea [Unknown]
  - Throat irritation [Unknown]
  - Arthralgia [Unknown]
  - Bladder prolapse [Unknown]
  - Blood immunoglobulin G increased [Unknown]
  - Nasal congestion [Unknown]

NARRATIVE: CASE EVENT DATE: 201706
